FAERS Safety Report 5181046-5 (Version None)
Quarter: 2006Q4

REPORT INFORMATION
  Report Type: 
  Country: None (occurrence: None)
  Receive Date: 20061215
  Receipt Date: 20061215
  Transmission Date: 20070319
  Serious: Yes (Life-Threatening, Hospitalization, Other)
  Sender: FDA-Public Use
  Company Number: None

PATIENT
  Age: 80 Year
  Sex: Male

DRUGS (2)
  1. ASPIRIN [Suspect]
     Indication: CORONARY ARTERIAL STENT INSERTION
     Dosage: 81MG QD PO
     Route: 048
     Dates: start: 20060704, end: 20061203
  2. CLOPIDOGREL [Suspect]
     Dosage: 75MG QD PO
     Route: 048
     Dates: start: 20020620

REACTIONS (1)
  - GASTROINTESTINAL HAEMORRHAGE [None]
